FAERS Safety Report 21188726 (Version 3)
Quarter: 2022Q4

REPORT INFORMATION
  Report Type: Report from Study
  Country: US (occurrence: US)
  Receive Date: 20220809
  Receipt Date: 20221013
  Transmission Date: 20230113
  Serious: Yes (Other)
  Sender: FDA-Public Use
  Company Number: US-NOVARTISPH-NVSC2022US177208

PATIENT
  Sex: Male

DRUGS (1)
  1. COSENTYX [Suspect]
     Active Substance: SECUKINUMAB
     Indication: Psoriasis
     Dosage: 300 MG, QMO
     Route: 058
     Dates: start: 202204

REACTIONS (5)
  - Nephrolithiasis [Recovered/Resolved]
  - Eye haemorrhage [Unknown]
  - Device malfunction [Recovered/Resolved]
  - Needle issue [Unknown]
  - Incorrect dose administered by device [Unknown]
